FAERS Safety Report 7163892-1 (Version None)
Quarter: 2010Q4

REPORT INFORMATION
  Report Type: 
  Country: None (occurrence: None)
  Receive Date: 20101210
  Receipt Date: 20101210
  Transmission Date: 20110411
  Serious: No
  Sender: FDA-Public Use
  Company Number: None

PATIENT
  Age: 72 Year
  Sex: Male

DRUGS (10)
  1. LETAIRIS [Suspect]
     Indication: PULMONARY HYPERTENSION
     Dosage: 5 MG DAILY ORALLY
     Route: 048
     Dates: start: 20101015, end: 20101205
  2. BUMETANIDE [Concomitant]
  3. KLOR-CON [Concomitant]
  4. LOSARTAN POTASSIUM [Concomitant]
  5. DIGOXIN [Concomitant]
  6. METOPROLOL TARTRATE [Concomitant]
  7. MINOXIDIL [Concomitant]
  8. ALLOPURINOL [Concomitant]
  9. SPIRIVA [Concomitant]
  10. WARFARIN [Concomitant]

REACTIONS (3)
  - OEDEMA GENITAL [None]
  - OEDEMA PERIPHERAL [None]
  - WEIGHT INCREASED [None]
